FAERS Safety Report 22988650 (Version 4)
Quarter: 2024Q1

REPORT INFORMATION
  Report Type: Spontaneous
  Country: US (occurrence: US)
  Receive Date: 20230926
  Receipt Date: 20240313
  Transmission Date: 20240409
  Serious: Yes (Hospitalization, Other)
  Sender: FDA-Public Use
  Company Number: US-009507513-2309USA006817

PATIENT
  Age: 67 Year
  Sex: Male

DRUGS (3)
  1. KEYTRUDA [Suspect]
     Active Substance: PEMBROLIZUMAB
     Indication: Lung carcinoma cell type unspecified stage IV
     Dosage: IV INFUSION EVERY 3 WEEKS
     Route: 042
     Dates: start: 202009, end: 20221231
  2. OXYCODONE [Concomitant]
     Active Substance: OXYCODONE\OXYCODONE HYDROCHLORIDE
  3. OXYCONTIN [Concomitant]
     Active Substance: OXYCODONE HYDROCHLORIDE
     Indication: Pain
     Dosage: 120 PILLS PER MONTH, FORMULATION: PILL

REACTIONS (9)
  - Chronic kidney disease [Unknown]
  - Renal failure [Unknown]
  - Acute kidney injury [Unknown]
  - Laboratory test abnormal [Unknown]
  - Pulmonary mass [Unknown]
  - Nerve injury [Unknown]
  - Muscle strain [Unknown]
  - Anger [Unknown]
  - Visual impairment [Unknown]

NARRATIVE: CASE EVENT DATE: 20201223
